FAERS Safety Report 8439699-1 (Version None)
Quarter: 2012Q2

REPORT INFORMATION
  Report Type: 
  Country: None (occurrence: None)
  Receive Date: 20120608
  Receipt Date: 20120529
  Transmission Date: 20120825
  Serious: Yes (Other)
  Sender: FDA-Public Use
  Company Number: 2012-002025

PATIENT
  Age: 37 Year
  Sex: Female
  Weight: 131 kg

DRUGS (5)
  1. NORVASC [Concomitant]
  2. ACCURETIC [Concomitant]
  3. COD LIVER OIL FORTIFIED TAB [Concomitant]
  4. CALCIUM + VITAMIN D /01483701/ (CALCIUM, COLECALCIFEROL) [Concomitant]
  5. ACTONEL [Suspect]
     Dosage: 35 MG, QD, ORAL
     Route: 048

REACTIONS (2)
  - HYPOCALCAEMIA [None]
  - ACCIDENTAL OVERDOSE [None]
